FAERS Safety Report 7824487-7 (Version None)
Quarter: 2011Q4

REPORT INFORMATION
  Report Type: 
  Country: None (occurrence: None)
  Receive Date: 20111018
  Receipt Date: 20111018
  Transmission Date: 20120403
  Serious: Yes (Hospitalization)
  Sender: FDA-Public Use
  Company Number: None

PATIENT
  Sex: Male
  Weight: 94 kg

DRUGS (18)
  1. METOPROLOL TARTRATE [Concomitant]
  2. M.V.I. [Concomitant]
  3. TRAVATAN [Concomitant]
  4. TRELSTAR [Concomitant]
  5. NEMADA [Concomitant]
  6. AZ EPT [Concomitant]
  7. HUMALOG [Concomitant]
  8. ALPHAGAN [Concomitant]
  9. LANTUS [Concomitant]
  10. LISINOPRIL [Concomitant]
  11. REVLIMID [Suspect]
     Indication: PROSTATE CANCER
     Dosage: 25 MG QD X 21 DAYS PO
     Route: 048
     Dates: start: 20110314
  12. LYRICA [Concomitant]
  13. ALBUTEROL [Concomitant]
  14. SPIRONOLACTONE [Concomitant]
  15. HYDROCODONE BITARTRATE [Concomitant]
  16. PULMECORT SEVERENT [Concomitant]
  17. CALCIUM CARBONATE [Concomitant]
  18. SPIRVA [Concomitant]

REACTIONS (2)
  - DYSPNOEA [None]
  - CARDIAC FAILURE [None]
